FAERS Safety Report 13181851 (Version 1)
Quarter: 2017Q1

REPORT INFORMATION
  Report Type: Spontaneous
  Country: US (occurrence: US)
  Receive Date: 20170202
  Receipt Date: 20170202
  Transmission Date: 20170428
  Serious: No
  Sender: FDA-Public Use
  Company Number: US-IMPAX LABORATORIES, INC-2016-IPXL-01503

PATIENT
  Age: 69 Year
  Sex: Female
  Weight: 42 kg

DRUGS (4)
  1. RYTARY [Suspect]
     Active Substance: CARBIDOPA\LEVODOPA
     Dosage: 23.75/95 MG, ONE CAPSULE, 3 /DAY (6 AM, 12 PM, 6 PM)
     Route: 048
     Dates: start: 20161114
  2. CARBIDOPA-LEVODOPA ER [Suspect]
     Active Substance: CARBIDOPA\LEVODOPA
     Dosage: 25/100 MG ONE TABLET, 3 /DAY
     Dates: start: 20160907, end: 20161011
  3. CARBIDOPA-LEVODOPA ER [Suspect]
     Active Substance: CARBIDOPA\LEVODOPA
     Indication: PARKINSON^S DISEASE
     Dosage: 25/100 MG, HALF A TABLET 3 /DAY
     Route: 065
     Dates: start: 20160708
  4. RYTARY [Suspect]
     Active Substance: CARBIDOPA\LEVODOPA
     Indication: PARKINSON^S DISEASE
     Dosage: 23.75/95 MG, ONE CAPSULE, 3 /DAY (6 AM, 3 PM, 10 PM)
     Route: 048
     Dates: start: 20161027

REACTIONS (5)
  - Disturbance in attention [Unknown]
  - Feeling abnormal [Recovered/Resolved]
  - Thinking abnormal [Unknown]
  - Tremor [Recovering/Resolving]
  - Osteoporosis [Unknown]

NARRATIVE: CASE EVENT DATE: 20161128
